FAERS Safety Report 9238514 (Version 1)
Quarter: 2013Q1

REPORT INFORMATION
  Report Type: Spontaneous
  Country: US (occurrence: None)
  Receive Date: 20121106
  Receipt Date: 20121106
  Transmission Date: 20140127
  Serious: No
  Sender: FDA-Public Use
  Company Number: 1000038887

PATIENT
  Age: 69 Year
  Sex: Female

DRUGS (6)
  1. DALIRESP [Suspect]
     Indication: CHRONIC OBSTRUCTIVE PULMONARY DISEASE
     Route: 048
     Dates: start: 201108
  2. HIGH BLOOD PRESSURE MEDICATION NOS [Concomitant]
  3. HIGH CHOLESTEROL MEDICATION [Concomitant]
  4. ALBUTEROL [Concomitant]
  5. BUDESONIDE [Concomitant]
  6. PERFOROMIST (FORMOTEROL FUMARATE) (FORMOTEROL FUMARATE) [Concomitant]

REACTIONS (4)
  - Weight decreased [None]
  - Nausea [None]
  - Diarrhoea [None]
  - Decreased appetite [None]
